FAERS Safety Report 8408878-1 (Version None)
Quarter: 2012Q2

REPORT INFORMATION
  Report Type: 
  Country: None (occurrence: None)
  Receive Date: 20120604
  Receipt Date: 20120525
  Transmission Date: 20120825
  Serious: Yes (Hospitalization)
  Sender: FDA-Public Use
  Company Number: US-ABBOTT-12P-163-0939350-00

PATIENT
  Sex: Female
  Weight: 97.156 kg

DRUGS (3)
  1. HUMIRA [Suspect]
     Dates: start: 20120101
  2. HUMIRA [Suspect]
     Indication: CROHN'S DISEASE
     Dates: start: 20080101
  3. CLARITIN [Concomitant]
     Indication: SEASONAL ALLERGY

REACTIONS (7)
  - PYREXIA [None]
  - MYALGIA [None]
  - DIARRHOEA HAEMORRHAGIC [None]
  - MIGRAINE [None]
  - ABDOMINAL PAIN [None]
  - CROHN'S DISEASE [None]
  - ARTHRALGIA [None]
